FAERS Safety Report 4464785-0 (Version None)
Quarter: 2004Q4

REPORT INFORMATION
  Report Type: 
  Country: None (occurrence: None)
  Receive Date: 20041004
  Receipt Date: 20040831
  Transmission Date: 20050328
  Serious: No
  Sender: FDA-Public Use
  Company Number: MCN380078

PATIENT
  Sex: Female

DRUGS (8)
  1. COREG [Suspect]
     Dosage: 3.125MG PER DAY
     Route: 048
  2. LASIX [Concomitant]
  3. SYNTHROID [Concomitant]
  4. TIAZAC [Concomitant]
  5. ALTACE [Concomitant]
  6. COUMADIN [Concomitant]
  7. LOTENSIN [Concomitant]
  8. ALBUTEROL [Concomitant]

REACTIONS (1)
  - DIARRHOEA [None]
